FAERS Safety Report 8848839 (Version 1)
Quarter: 2012Q4

REPORT INFORMATION
  Report Type: Spontaneous
  Country: None (occurrence: None)
  Receive Date: 20121016
  Receipt Date: 20121016
  Transmission Date: 20130627
  Serious: Yes (Death, Hospitalization)
  Sender: FDA-Public Use
  Company Number: 2012SP002971

PATIENT
  Age: 59 Year
  Sex: Female

DRUGS (3)
  1. FLUOROURACIL (FLUOROURACIL) [Suspect]
     Indication: RECTAL ADENOCARCINOMA
  2. FOLINIC ACID [Concomitant]
  3. OXALIPLATIN [Concomitant]

REACTIONS (2)
  - Hyperammonaemic encephalopathy [None]
  - Coma [None]
